FAERS Safety Report 7425545-1 (Version None)
Quarter: 2011Q2

REPORT INFORMATION
  Report Type: 
  Country: None (occurrence: None)
  Receive Date: 20110418
  Receipt Date: 20110418
  Transmission Date: 20111010
  Serious: Yes (Other)
  Sender: FDA-Public Use
  Company Number: None

PATIENT
  Age: 72 Year
  Sex: Male

DRUGS (7)
  1. REVLIMID [Suspect]
     Indication: MULTIPLE MYELOMA
     Dosage: REVLIMID 10 MG DAILY ORALLY
     Route: 048
     Dates: start: 20101110, end: 20101123
  2. VITAMIN B-12 [Concomitant]
  3. DEXAMETHASONE [Concomitant]
  4. FENTANYL-100 [Concomitant]
  5. REVLIMID [Suspect]
  6. ACYCLOVIR [Concomitant]
  7. ASPIRIN [Concomitant]

REACTIONS (2)
  - RASH ERYTHEMATOUS [None]
  - RASH PRURITIC [None]
